FAERS Safety Report 7676961-4 (Version None)
Quarter: 2011Q3

REPORT INFORMATION
  Report Type: 
  Country: None (occurrence: None)
  Receive Date: 20110811
  Receipt Date: 20110810
  Transmission Date: 20111222
  Serious: Yes (Death)
  Sender: FDA-Public Use
  Company Number: PHHY2011US60882

PATIENT
  Sex: Female
  Weight: 32.7 kg

DRUGS (2)
  1. EXJADE [Suspect]
     Indication: IRON OVERLOAD
     Dosage: 1125 MG, DAILY
     Route: 048
     Dates: start: 20110601
  2. DESFERAL [Concomitant]
     Dosage: 1700 MG OVER 10 HOURS FOR 5 NIGHTS PER WEEK
     Route: 058
     Dates: start: 20110601

REACTIONS (1)
  - DEATH [None]
